FAERS Safety Report 6085585-4 (Version None)
Quarter: 2009Q1

REPORT INFORMATION
  Report Type: 
  Country: None (occurrence: None)
  Receive Date: 20090217
  Receipt Date: 20090217
  Transmission Date: 20090719
  Serious: No
  Sender: FDA-Public Use
  Company Number: None

PATIENT
  Age: 9 Year
  Sex: Male
  Weight: 35.3806 kg

DRUGS (2)
  1. SINGULAIR [Suspect]
     Indication: ASTHMA
     Dosage: 5 MG HS PO
     Route: 048
     Dates: start: 20040101, end: 20090210
  2. SINGULAIR [Suspect]
     Indication: HYPERSENSITIVITY
     Dosage: 5 MG HS PO
     Route: 048
     Dates: start: 20040101, end: 20090210

REACTIONS (3)
  - ABNORMAL BEHAVIOUR [None]
  - ABNORMAL DREAMS [None]
  - HEADACHE [None]
